FAERS Safety Report 12584382 (Version 1)
Quarter: 2016Q3

REPORT INFORMATION
  Report Type: Spontaneous
  Country: PT (occurrence: PT)
  Receive Date: 20160722
  Receipt Date: 20160722
  Transmission Date: 20161109
  Serious: Yes (Other)
  Sender: FDA-Public Use
  Company Number: PT-GLAXOSMITHKLINE-PT2016GSK102138

PATIENT
  Age: 39 Year
  Sex: Male

DRUGS (8)
  1. EMTRICITABINE + TENOFOVIR [Concomitant]
     Active Substance: EMTRICITABINE\TENOFOVIR
     Indication: HIV INFECTION
     Dosage: UNK, QD
  2. LAMIVUDINE AND ZIDOVUDINE [Concomitant]
     Active Substance: LAMIVUDINE\ZIDOVUDINE
     Indication: HIV INFECTION
     Dosage: UNK UNK, BID
     Dates: start: 2004
  3. FLUTICASONE FUROATE [Suspect]
     Active Substance: FLUTICASONE FUROATE
     Indication: ASTHMA
     Dosage: 110 UG, QD
     Route: 045
  4. FLUTICASONE FUROATE [Interacting]
     Active Substance: FLUTICASONE FUROATE
     Indication: RHINITIS ALLERGIC
  5. FLUTICASONE PROPIONATE+SALMETEROL XINAFOATE [Interacting]
     Active Substance: FLUTICASONE PROPIONATE\SALMETEROL XINAFOATE
     Indication: RHINITIS ALLERGIC
  6. DARUNAVIR + RITONAVIR [Interacting]
     Active Substance: DARUNAVIR\RITONAVIR
     Indication: PRODUCT USED FOR UNKNOWN INDICATION
  7. ATAZANAVIR + RITONAVIR [Interacting]
     Active Substance: ATAZANAVIR\RITONAVIR
     Indication: HIV INFECTION
     Dosage: UNK UNK, QD
  8. FLUTICASONE PROPIONATE+SALMETEROL XINAFOATE [Interacting]
     Active Substance: FLUTICASONE PROPIONATE\SALMETEROL XINAFOATE
     Indication: ASTHMA
     Dosage: UNK, BID

REACTIONS (29)
  - Muscle atrophy [Unknown]
  - Spinal fracture [Unknown]
  - Drug interaction [Unknown]
  - Libido decreased [Unknown]
  - Oedema peripheral [Unknown]
  - Increased tendency to bruise [Unknown]
  - Osteosclerosis [Unknown]
  - Blood cortisol decreased [Unknown]
  - Abdominal distension [Recovering/Resolving]
  - Onychomycosis [Unknown]
  - Hypercorticoidism [Unknown]
  - Fracture [Unknown]
  - Osteoporosis [Unknown]
  - Hypotrichosis [Unknown]
  - Intervertebral disc degeneration [Unknown]
  - Fall [Unknown]
  - Hypertension [Unknown]
  - Obesity [Unknown]
  - CD4 lymphocytes decreased [Recovering/Resolving]
  - Fatigue [Unknown]
  - Skin fragility [Unknown]
  - Cortisol free urine decreased [Unknown]
  - Cushing^s syndrome [Recovering/Resolving]
  - Muscular weakness [Recovering/Resolving]
  - Back pain [Unknown]
  - Depression [Unknown]
  - Cushingoid [Recovering/Resolving]
  - Lipohypertrophy [Unknown]
  - Blood corticotrophin decreased [Unknown]
